FAERS Safety Report 11553154 (Version 1)
Quarter: 2015Q3

REPORT INFORMATION
  Report Type: Spontaneous
  Country: US (occurrence: None)
  Receive Date: 20150924
  Receipt Date: 20150924
  Transmission Date: 20151125
  Serious: Yes (Other)
  Sender: FDA-Public Use
  Company Number: None

PATIENT
  Age: 64 Year
  Sex: Female
  Weight: 83.92 kg

DRUGS (1)
  1. RITUXAN [Suspect]
     Active Substance: RITUXIMAB
     Indication: ACUTE MYELOID LEUKAEMIA
     Dosage: IV 738 MG 10 MG/ML
     Route: 042
     Dates: start: 20150922

REACTIONS (4)
  - Chills [None]
  - Wheezing [None]
  - Oxygen saturation decreased [None]
  - Body temperature decreased [None]

NARRATIVE: CASE EVENT DATE: 20150922
